FAERS Safety Report 6128500-7 (Version None)
Quarter: 2009Q1

REPORT INFORMATION
  Report Type: 
  Country: None (occurrence: None)
  Receive Date: 20090319
  Receipt Date: 20090305
  Transmission Date: 20090719
  Serious: Yes (Hospitalization)
  Sender: FDA-Public Use
  Company Number: 02100-JPN-06-0376

PATIENT
  Age: 67 Year
  Sex: Male

DRUGS (10)
  1. PLETAL [Suspect]
     Indication: CEREBRAL ARTERY STENOSIS
     Dosage: 100 MG, BID ORAL
     Route: 048
     Dates: start: 20060513, end: 20060522
  2. OXIRACETAM (OXIRACETAM) [Concomitant]
  3. ASPIRIN [Concomitant]
  4. OZAGREL SODIUM (OZAGREL SODIUM) [Concomitant]
  5. SODIUM CHLORIDE [Concomitant]
  6. VOGLIBOSE (VOGLIBOSE) [Concomitant]
  7. ACETAMINOPHEN [Concomitant]
  8. DONEPEZIL HCL [Concomitant]
  9. CLOPIDOGREL [Concomitant]
  10. TELMISARTAN [Concomitant]

REACTIONS (6)
  - ABDOMINAL PAIN LOWER [None]
  - CYST [None]
  - DRUG EFFECT DECREASED [None]
  - FAECAL VOLUME DECREASED [None]
  - HEPATIC STEATOSIS [None]
  - WEIGHT DECREASED [None]
